FAERS Safety Report 8522204-9 (Version None)
Quarter: 2012Q3

REPORT INFORMATION
  Report Type: 
  Country: None (occurrence: None)
  Receive Date: 20120719
  Receipt Date: 20120710
  Transmission Date: 20120928
  Serious: Yes (Other)
  Sender: FDA-Public Use
  Company Number: US-ABBOTT-12P-163-0954784-00

PATIENT
  Sex: Female
  Weight: 59.02 kg

DRUGS (16)
  1. HUMIRA [Suspect]
     Dates: start: 20120201, end: 20120626
  2. BYSTOLIC [Concomitant]
     Indication: SILENT MYOCARDIAL INFARCTION
  3. LASIX [Concomitant]
     Indication: OEDEMA PERIPHERAL
  4. MORPHINE SULFATE [Concomitant]
     Indication: ARTHRALGIA
  5. GABAPENTIN [Concomitant]
     Indication: TREMOR
  6. KLONOPIN [Concomitant]
     Indication: TREMOR
  7. AMITRIPTYLINE HCL [Concomitant]
     Indication: ANXIETY
  8. SINGULAIR [Concomitant]
     Indication: ASTHMA
  9. BYSTOLIC [Concomitant]
     Indication: HEART RATE IRREGULAR
  10. ZOLPIDEM [Concomitant]
     Indication: SLEEP DISORDER
  11. HUMIRA [Suspect]
     Indication: ANKYLOSING SPONDYLITIS
     Dates: start: 20090101, end: 20111201
  12. SINGULAIR [Concomitant]
     Indication: BRONCHITIS CHRONIC
  13. FLEXERIL [Concomitant]
     Indication: MUSCLE SPASMS
  14. CYMBALTA [Concomitant]
     Indication: ANXIETY
  15. ALBUTEROL [Concomitant]
     Indication: BRONCHITIS CHRONIC
  16. ALBUTEROL [Concomitant]
     Indication: ASTHMA

REACTIONS (9)
  - FATIGUE [None]
  - EYE SWELLING [None]
  - RASH [None]
  - BLISTER [None]
  - INFLUENZA [None]
  - HERPES ZOSTER [None]
  - BLOOD IRON DECREASED [None]
  - HAEMOGLOBIN DECREASED [None]
  - PAIN [None]
